FAERS Safety Report 21390550 (Version 1)
Quarter: 2022Q3

REPORT INFORMATION
  Report Type: Spontaneous
  Country: US (occurrence: None)
  Receive Date: 20220927
  Receipt Date: 20220927
  Transmission Date: 20221026
  Serious: Yes (Other)
  Sender: FDA-Public Use
  Company Number: None

PATIENT
  Age: 62 Year
  Sex: Male
  Weight: 101.25 kg

DRUGS (5)
  1. CIPROFLOXACIN [Suspect]
     Active Substance: CIPROFLOXACIN
     Indication: Orchitis
     Dosage: FREQUENCY : TWICE A DAY;?
     Route: 048
     Dates: start: 20220829, end: 20220917
  2. METOPROLOL [Concomitant]
     Active Substance: METOPROLOL
  3. Tartrate [Concomitant]
  4. AMLODIPINE [Concomitant]
     Active Substance: AMLODIPINE BESYLATE
  5. Besylate [Concomitant]

REACTIONS (5)
  - Anger [None]
  - Agitation [None]
  - Insomnia [None]
  - Muscle spasms [None]
  - Nervousness [None]

NARRATIVE: CASE EVENT DATE: 20220917
